FAERS Safety Report 4686180-1 (Version None)
Quarter: 2005Q2

REPORT INFORMATION
  Report Type: 
  Country: None (occurrence: None)
  Receive Date: 20050609
  Receipt Date: 20050511
  Transmission Date: 20051028
  Serious: Yes (Disabling)
  Sender: FDA-Public Use
  Company Number: US-BOEHRINGER INGELHEIM PHARMACEUTICALS, INC.-2005-BP-07921BP

PATIENT
  Age: 79 Year
  Sex: Male

DRUGS (19)
  1. FLOMAX [Suspect]
     Indication: BLADDER DISORDER
     Dates: start: 20010101, end: 20030101
  2. FLOMAX [Suspect]
     Indication: BENIGN PROSTATIC HYPERPLASIA
     Dates: start: 20030101
  3. FLOMAX [Suspect]
     Dates: start: 20041101
  4. NORVASC [Concomitant]
     Route: 048
  5. ADVAIR DISKUS 100/50 [Concomitant]
     Indication: CHRONIC OBSTRUCTIVE PULMONARY DISEASE
     Dosage: 250MG/50MG ( 1PUFF/2/DAY)
     Route: 055
  6. ZOCOR [Concomitant]
     Route: 048
  7. NITROGLYCERIN [Concomitant]
     Indication: HYPERTENSION
     Dosage: 0.4 MG/2/DAILY
     Route: 061
  8. DIFUZANOLE [Concomitant]
     Route: 048
  9. PRILOSEC [Concomitant]
     Dosage: 20 MG/2/DAILY
     Route: 048
  10. PINDILOL [Concomitant]
     Route: 048
  11. ASPIRIN [Concomitant]
     Route: 048
  12. XALATAN [Concomitant]
  13. ALBUTEROL [Concomitant]
     Indication: CHRONIC OBSTRUCTIVE PULMONARY DISEASE
     Dosage: PRN
     Route: 055
  14. ETODOLAC [Concomitant]
     Dosage: 400 MG/2/DAY
  15. FELODIPINE [Concomitant]
     Dosage: 5 MG/2/DAY
  16. FLUNISOLIDE [Concomitant]
     Route: 055
  17. LATANOPROST [Concomitant]
     Dosage: DROPS
     Route: 031
  18. LORATADINE [Concomitant]
  19. TRAVOPROST [Concomitant]
     Dosage: 2 DROPS EACH EYE

REACTIONS (4)
  - BLINDNESS UNILATERAL [None]
  - EYE DISORDER [None]
  - VASCULAR RUPTURE [None]
  - VISION BLURRED [None]
